FAERS Safety Report 24205392 (Version 2)
Quarter: 2024Q3

REPORT INFORMATION
  Report Type: Report from Study
  Country: JP (occurrence: JP)
  Receive Date: 20240813
  Receipt Date: 20240819
  Transmission Date: 20241016
  Serious: Yes (Hospitalization)
  Sender: DAIICHI
  Company Number: JP-DSJP-DSJ-2024-136783

PATIENT
  Age: 80 Year
  Sex: Female
  Weight: 42 kg

DRUGS (5)
  1. ENHERTU [Suspect]
     Active Substance: FAM-TRASTUZUMAB DERUXTECAN-NXKI
     Indication: HER2 low breast cancer
     Dosage: 5.4 MG/KG, ONCE EVERY 3 WK
     Route: 041
     Dates: start: 20240416, end: 20240416
  2. ENHERTU [Suspect]
     Active Substance: FAM-TRASTUZUMAB DERUXTECAN-NXKI
     Dosage: 5.4 MG/KG, ONCE EVERY 3 WK
     Route: 041
     Dates: start: 20240507, end: 20240507
  3. ENHERTU [Suspect]
     Active Substance: FAM-TRASTUZUMAB DERUXTECAN-NXKI
     Dosage: 4.4 MG/KG, ONCE EVERY 3 WK
     Route: 041
     Dates: start: 20240528, end: 20240528
  4. DEXAMETHASONE SODIUM PHOSPHATE [Concomitant]
     Active Substance: DEXAMETHASONE PHOSPHATE\DEXAMETHASONE SODIUM PHOSPHATE
     Indication: Antiemetic supportive care
     Dosage: UNK
     Route: 042
  5. 5-HT3 RECEPTOR ANTAGONIST (1st GENERATION) [Concomitant]
     Indication: Antiemetic supportive care
     Dosage: UNK
     Route: 065

REACTIONS (2)
  - Diarrhoea [Recovering/Resolving]
  - Cerebellar infarction [Recovered/Resolved with Sequelae]

NARRATIVE: CASE EVENT DATE: 20240423
